FAERS Safety Report 22363811 (Version 1)
Quarter: 2023Q2

REPORT INFORMATION
  Report Type: Report from Study
  Country: FR (occurrence: FR)
  Receive Date: 20230525
  Receipt Date: 20230525
  Transmission Date: 20230721
  Serious: Yes (Other)
  Sender: FDA-Public Use
  Company Number: FR-002147023-NVSC2023FR118012

PATIENT
  Sex: Male
  Weight: 73 kg

DRUGS (1)
  1. PLUVICTO [Suspect]
     Active Substance: LUTETIUM LU-177 VIPIVOTIDE TETRAXETAN
     Indication: Prostate cancer
     Dosage: UNK, ONCE (1ST CYCLE)
     Route: 065
     Dates: start: 20230418, end: 20230418

REACTIONS (1)
  - Hepatic lesion [Unknown]
